FAERS Safety Report 25172758 (Version 1)
Quarter: 2025Q2

REPORT INFORMATION
  Report Type: Spontaneous
  Country: US (occurrence: US)
  Receive Date: 20250408
  Receipt Date: 20250408
  Transmission Date: 20250717
  Serious: Yes (Other)
  Sender: SANDOZ
  Company Number: US-SANDOZ-SDZ2025US021451

PATIENT
  Age: 59 Year
  Sex: Female

DRUGS (2)
  1. ESTRADIOL [Suspect]
     Active Substance: ESTRADIOL
     Indication: Product used for unknown indication
     Route: 062
  2. Diabetese [Concomitant]
     Indication: Diabetes mellitus
     Route: 065

REACTIONS (2)
  - Diabetes mellitus [Unknown]
  - Product adhesion issue [Unknown]
